FAERS Safety Report 8607644-1 (Version None)
Quarter: 2012Q3

REPORT INFORMATION
  Report Type: 
  Country: None (occurrence: None)
  Receive Date: 20120809
  Receipt Date: 20120809
  Transmission Date: 20120928
  Serious: No
  Sender: FDA-Public Use
  Company Number: None

PATIENT
  Age: 64 Year
  Sex: Male
  Weight: 87.6 kg

DRUGS (2)
  1. VANCOMYCIN [Suspect]
     Dosage: 240 MG, ONCE, IV
     Route: 042
     Dates: start: 20111221, end: 20111221
  2. ... [Concomitant]
     Dosage: 3.375 GM, QID, IV
     Route: 042
     Dates: start: 20110830, end: 20110907

REACTIONS (2)
  - TINNITUS [None]
  - SWOLLEN TONGUE [None]
